FAERS Safety Report 11994729 (Version 1)
Quarter: 2016Q1

REPORT INFORMATION
  Report Type: Spontaneous
  Country: US (occurrence: US)
  Receive Date: 20160203
  Receipt Date: 20160203
  Transmission Date: 20160526
  Serious: No
  Sender: FDA-Public Use
  Company Number: US-BAYER-2016-012677

PATIENT
  Age: 77 Year
  Sex: Male
  Weight: 86.17 kg

DRUGS (2)
  1. LISINOPRIL. [Concomitant]
     Active Substance: LISINOPRIL
  2. MIRALAX [Suspect]
     Active Substance: POLYETHYLENE GLYCOL 3350
     Indication: IRRITABLE BOWEL SYNDROME
     Dosage: 1/2; 3/4; OR 1 QD
     Route: 048
     Dates: start: 2008

REACTIONS (3)
  - Product use issue [None]
  - Therapeutic response unexpected [None]
  - Off label use [None]
